FAERS Safety Report 12616339 (Version 1)
Quarter: 2016Q3

REPORT INFORMATION
  Report Type: Spontaneous
  Country: US (occurrence: US)
  Receive Date: 20160802
  Receipt Date: 20160802
  Transmission Date: 20161109
  Serious: No
  Sender: FDA-Public Use
  Company Number: US-PERRIGO-16US001986

PATIENT
  Age: 5 Month
  Sex: Female
  Weight: 11.79 kg

DRUGS (4)
  1. CETIRIZINE HYDROCHLORIDE. [Suspect]
     Active Substance: CETIRIZINE HYDROCHLORIDE
     Indication: RHINORRHOEA
     Dosage: 1.25 MG, QD AT BEDTIME
     Route: 048
     Dates: start: 201403, end: 2014
  2. CETIRIZINE HYDROCHLORIDE. [Suspect]
     Active Substance: CETIRIZINE HYDROCHLORIDE
     Indication: COUGH
     Dosage: 3.75 MG, QD AT BEDTIME
     Route: 048
     Dates: start: 2015
  3. CETIRIZINE HYDROCHLORIDE. [Suspect]
     Active Substance: CETIRIZINE HYDROCHLORIDE
     Dosage: 8.75 MG, WITHIN FIVE MINUTES
     Route: 048
     Dates: start: 20160220, end: 20160220
  4. CETIRIZINE HYDROCHLORIDE. [Suspect]
     Active Substance: CETIRIZINE HYDROCHLORIDE
     Indication: EYE PRURITUS
     Dosage: 2.5 MG, QD AT BEDTIME
     Route: 048
     Dates: start: 2014, end: 2015

REACTIONS (4)
  - Off label use [Unknown]
  - Drug administration error [Recovered/Resolved]
  - No adverse event [Unknown]
  - Incorrect dose administered [Unknown]

NARRATIVE: CASE EVENT DATE: 201403
